FAERS Safety Report 8619292-8 (Version None)
Quarter: 2012Q3

REPORT INFORMATION
  Report Type: 
  Country: None (occurrence: None)
  Receive Date: 20120824
  Receipt Date: 20120816
  Transmission Date: 20120928
  Serious: Yes (Hospitalization)
  Sender: FDA-Public Use
  Company Number: US-ASTELLAS-2012US002427

PATIENT
  Sex: Male
  Weight: 13.2 kg

DRUGS (8)
  1. ORAPRED [Concomitant]
     Indication: CROUP INFECTIOUS
     Dosage: 5 ML, UID/QD
     Route: 048
     Dates: start: 20111103
  2. TACROLIMUS [Suspect]
     Dosage: UNK, 2 1/2 APPLICATIONS/DAY
     Route: 061
     Dates: start: 20110916
  3. PEDIATEX TD [Concomitant]
     Indication: RHINORRHOEA
  4. TACROLIMUS [Suspect]
     Indication: DERMATITIS ATOPIC
     Dosage: 0.1 %, BID
     Route: 061
     Dates: start: 20110624
  5. PEDIATEX TD [Concomitant]
     Indication: NASAL CONGESTION
     Dosage: 1 ML, Q8 HOURS
     Route: 048
     Dates: start: 20120120
  6. PEDIATEX TD [Concomitant]
     Indication: SNEEZING
  7. CEFPROZIL [Concomitant]
     Indication: OTITIS MEDIA
     Dosage: 5 ML, Q2 HOURS
     Route: 048
     Dates: start: 20120120
  8. ZOVIRAX [Concomitant]
     Indication: HERPES SIMPLEX
     Dosage: 3 1/2 APPLICATIONS/DAY
     Route: 061
     Dates: start: 20110916

REACTIONS (5)
  - PNEUMONIA [None]
  - PYREXIA [None]
  - OFF LABEL USE [None]
  - HYPOXIA [None]
  - DEHYDRATION [None]
